FAERS Safety Report 17083808 (Version 1)
Quarter: 2019Q4

REPORT INFORMATION
  Report Type: Report from Study
  Country: US (occurrence: US)
  Receive Date: 20191127
  Receipt Date: 20191127
  Transmission Date: 20200122
  Serious: No
  Sender: FDA-Public Use
  Company Number: US-IPSEN BIOPHARMACEUTICALS, INC.-2019-22728

PATIENT
  Age: 15 Year

DRUGS (3)
  1. DYSPORT [Suspect]
     Active Substance: ABOBOTULINUMTOXINA
     Indication: OFF LABEL USE
  2. DYSPORT [Suspect]
     Active Substance: ABOBOTULINUMTOXINA
     Indication: MUSCLE SPASTICITY
  3. DYSPORT [Suspect]
     Active Substance: ABOBOTULINUMTOXINA
     Indication: MUSCLE SPASTICITY
     Dosage: FINGER FLEXORS (65 UNITS NOT SPECIFIED), WRIST FLEXORS (75 UNITS NOT SPECIFIED), ELBOW FLEXORS (70 U
     Route: 030

REACTIONS (3)
  - Muscle spasticity [Unknown]
  - Prescribed overdose [Unknown]
  - Off label use [Unknown]
